FAERS Safety Report 7728100-9 (Version None)
Quarter: 2011Q3

REPORT INFORMATION
  Report Type: 
  Country: None (occurrence: None)
  Receive Date: 20110905
  Receipt Date: 20110825
  Transmission Date: 20111222
  Serious: No
  Sender: FDA-Public Use
  Company Number: US-BIOGENIDEC-2011BI033239

PATIENT
  Age: 51 Year
  Sex: Female

DRUGS (2)
  1. AVONEX [Suspect]
     Indication: MULTIPLE SCLEROSIS
     Route: 030
     Dates: start: 20110301
  2. AVONEX [Suspect]
     Route: 030
     Dates: start: 19981101, end: 20010701

REACTIONS (7)
  - GAIT DISTURBANCE [None]
  - NEUROLOGICAL COMPLICATION ASSOCIATED WITH DEVICE [None]
  - HYPOAESTHESIA [None]
  - SENSATION OF HEAVINESS [None]
  - POST LUMBAR PUNCTURE SYNDROME [None]
  - PYREXIA [None]
  - MUSCLE RIGIDITY [None]
